FAERS Safety Report 23563328 (Version 1)
Quarter: 2024Q1

REPORT INFORMATION
  Report Type: Spontaneous
  Country: US (occurrence: US)
  Receive Date: 20240226
  Receipt Date: 20240226
  Transmission Date: 20240409
  Serious: Yes (Hospitalization, Other)
  Sender: FDA-Public Use
  Company Number: US-SA-SAC20240223000094

PATIENT
  Sex: Male

DRUGS (4)
  1. ALPROLIX [Suspect]
     Active Substance: EFTRENONACOG ALFA
     Indication: Factor IX deficiency
     Dosage: 4000 UNITS (3600-4400) SLOW IV PUSH EVERY 7 DAYS FOR PROHYLAXIS
     Route: 042
     Dates: start: 201710
  2. ALPROLIX [Suspect]
     Active Substance: EFTRENONACOG ALFA
     Indication: Factor IX deficiency
     Dosage: 4000 UNITS (3600-4400) SLOW IV PUSH EVERY 7 DAYS FOR PROHYLAXIS
     Route: 042
     Dates: start: 201710
  3. ALPROLIX [Suspect]
     Active Substance: EFTRENONACOG ALFA
     Dosage: INFUSE 4000 UNITS (3600-4400) SLOW IV PUSH EVERY 48 HOURS FOR BLEEDS
     Route: 042
  4. ALPROLIX [Suspect]
     Active Substance: EFTRENONACOG ALFA
     Dosage: INFUSE 4000 UNITS (3600-4400) SLOW IV PUSH EVERY 48 HOURS FOR BLEEDS
     Route: 042

REACTIONS (2)
  - Knee arthroplasty [Unknown]
  - Haemorrhage [Unknown]
